FAERS Safety Report 10220807 (Version 1)
Quarter: 2014Q2

REPORT INFORMATION
  Report Type: Report from Study
  Country: US (occurrence: US)
  Receive Date: 20140606
  Receipt Date: 20140606
  Transmission Date: 20141212
  Serious: Yes (Hospitalization)
  Sender: FDA-Public Use
  Company Number: US-JNJFOC-20140519852

PATIENT
  Age: 61 Year
  Sex: Female
  Weight: 68.04 kg

DRUGS (11)
  1. REMICADE [Suspect]
     Indication: RHEUMATOID ARTHRITIS
     Dosage: 06 YEARS PRIOR TO THE DATE OF THIS REPORT
     Route: 042
  2. REMICADE [Suspect]
     Indication: RHEUMATOID ARTHRITIS
     Route: 042
     Dates: start: 20140303
  3. REMICADE [Suspect]
     Indication: CROHN^S DISEASE
     Dosage: 06 YEARS PRIOR TO THE DATE OF THIS REPORT
     Route: 042
  4. REMICADE [Suspect]
     Indication: CROHN^S DISEASE
     Route: 042
     Dates: start: 20140303
  5. NEXIUM [Concomitant]
     Indication: GASTROOESOPHAGEAL REFLUX DISEASE
     Route: 048
  6. POTASSIUM [Concomitant]
     Indication: CROHN^S DISEASE
     Route: 048
  7. MAGNESIUM [Concomitant]
     Indication: CROHN^S DISEASE
     Route: 048
  8. VITAMIN D [Concomitant]
     Indication: CROHN^S DISEASE
     Route: 048
  9. TUMS [Concomitant]
     Indication: CROHN^S DISEASE
     Route: 048
  10. PREDNISONE [Concomitant]
     Indication: CROHN^S DISEASE
     Route: 048
     Dates: end: 201404
  11. PROMETHAZINE [Concomitant]
     Indication: NAUSEA
     Route: 048

REACTIONS (3)
  - Malaise [Recovered/Resolved]
  - Wrong technique in drug usage process [Recovered/Resolved]
  - Drug dose omission [Unknown]
